FAERS Safety Report 4588143-3 (Version None)
Quarter: 2005Q1

REPORT INFORMATION
  Report Type: 
  Country: None (occurrence: None)
  Receive Date: 20050221
  Receipt Date: 20050211
  Transmission Date: 20050727
  Serious: Yes (Hospitalization)
  Sender: FDA-Public Use
  Company Number: PHHO2005ES02589

PATIENT
  Age: 60 Year
  Sex: Male

DRUGS (12)
  1. NEORAL [Suspect]
     Indication: RENAL TRANSPLANT
     Dosage: 600 MG, QD
     Route: 048
     Dates: start: 20031213
  2. MYCOPHENOLATE MOFETIL [Suspect]
     Indication: RENAL TRANSPLANT
     Dosage: 2000 MG, QD
     Route: 048
     Dates: start: 20031213
  3. PREDNISOLONE [Suspect]
     Indication: RENAL TRANSPLANT
     Dosage: 20 MG, QD
     Route: 048
     Dates: start: 20031213
  4. COTRIMOXAZOL [Concomitant]
  5. DOXAZOSIN [Concomitant]
  6. LEVOTHYROXINE [Concomitant]
  7. FUROSEMIDE [Concomitant]
  8. ATENOLOL [Concomitant]
  9. AMLODIPINE [Concomitant]
  10. LOSARTAN POTASSIUM [Concomitant]
  11. BROMAZEPAM [Concomitant]
  12. FERROUS SULFATE TAB [Concomitant]

REACTIONS (5)
  - ABDOMINAL PAIN UPPER [None]
  - CHEST PAIN [None]
  - DYSPEPSIA [None]
  - GASTROOESOPHAGEAL REFLUX DISEASE [None]
  - PNEUMONIA [None]
